FAERS Safety Report 4688967-8 (Version None)
Quarter: 2005Q2

REPORT INFORMATION
  Report Type: 
  Country: None (occurrence: None)
  Receive Date: 20050613
  Receipt Date: 20050310
  Transmission Date: 20051028
  Serious: Yes (Death, Hospitalization, Other)
  Sender: FDA-Public Use
  Company Number: US-MERCK-0503USA02272

PATIENT
  Age: 55 Year
  Sex: Male
  Weight: 100 kg

DRUGS (2)
  1. VIOXX [Suspect]
     Indication: OSTEOARTHRITIS
     Route: 048
     Dates: start: 20021203, end: 20040219
  2. ALTACE [Concomitant]
     Indication: HYPERTENSION
     Route: 048
     Dates: start: 20020321, end: 20040219

REACTIONS (14)
  - ABDOMINAL PAIN UPPER [None]
  - ARTERIOSCLEROSIS [None]
  - ARTHRALGIA [None]
  - BLOOD CHOLESTEROL INCREASED [None]
  - BLOOD TRIGLYCERIDES INCREASED [None]
  - BRONCHITIS [None]
  - CATARACT [None]
  - CHEST PAIN [None]
  - DERMATITIS [None]
  - HYPERTENSION [None]
  - PULMONARY CONGESTION [None]
  - RASH GENERALISED [None]
  - SKIN PAPILLOMA [None]
  - SUDDEN DEATH [None]
